FAERS Safety Report 6743633-X (Version None)
Quarter: 2010Q2

REPORT INFORMATION
  Report Type: 
  Country: None (occurrence: None)
  Receive Date: 20100527
  Receipt Date: 20100511
  Transmission Date: 20101027
  Serious: Yes (Life-Threatening, Hospitalization)
  Sender: FDA-Public Use
  Company Number: IN-JNJFOC-20100507942

PATIENT
  Age: 20 Year
  Sex: Male
  Weight: 45 kg

DRUGS (9)
  1. TRAMADOL HYDROCHLORIDE [Suspect]
     Indication: PAIN
     Route: 042
  2. NITROUS OXIDE [Concomitant]
     Route: 065
  3. PROPOFOL [Concomitant]
     Route: 065
  4. OXYGEN [Concomitant]
     Route: 065
  5. VECURONIUM BROMIDE [Concomitant]
     Route: 065
  6. ISOFLURANE [Concomitant]
     Route: 065
  7. NEOSTIGMINE [Concomitant]
     Route: 065
  8. GLYCOPYRROLATE [Concomitant]
     Route: 065
  9. FENTANYL [Concomitant]
     Route: 065

REACTIONS (3)
  - APNOEA [None]
  - OXYGEN SATURATION DECREASED [None]
  - UNRESPONSIVE TO STIMULI [None]
